FAERS Safety Report 18329750 (Version 3)
Quarter: 2021Q3

REPORT INFORMATION
  Report Type: Spontaneous
  Country: US (occurrence: US)
  Receive Date: 20200930
  Receipt Date: 20210709
  Transmission Date: 20211014
  Serious: Yes (Hospitalization, Other)
  Sender: FDA-Public Use
  Company Number: US-PFIZER INC-2020376604

PATIENT
  Age: 55 Year
  Sex: Female
  Weight: 90.72 kg

DRUGS (1)
  1. CHANTIX [Suspect]
     Active Substance: VARENICLINE TARTRATE
     Indication: SMOKING CESSATION THERAPY
     Dosage: 1 MG, 2X/DAY
     Route: 048

REACTIONS (11)
  - Condition aggravated [Unknown]
  - Eating disorder [Unknown]
  - Impaired gastric emptying [Unknown]
  - Ear pain [Unknown]
  - Therapeutic product effect incomplete [Unknown]
  - Illness [Unknown]
  - Illness [Unknown]
  - Pneumonia [Unknown]
  - Headache [Unknown]
  - Migraine [Unknown]
  - Ear infection [Unknown]

NARRATIVE: CASE EVENT DATE: 201506
